FAERS Safety Report 14450458 (Version 1)
Quarter: 2018Q1

REPORT INFORMATION
  Report Type: Spontaneous
  Country: ES (occurrence: ES)
  Receive Date: 20180129
  Receipt Date: 20180129
  Transmission Date: 20180509
  Serious: Yes (Hospitalization)
  Sender: FDA-Public Use
  Company Number: ES-JNJFOC-20180115938

PATIENT
  Age: 62 Year
  Sex: Male

DRUGS (2)
  1. IBUPROFENO (1769A) [Suspect]
     Active Substance: IBUPROFEN
     Route: 048
  2. IBUPROFENO (1769A) [Suspect]
     Active Substance: IBUPROFEN
     Indication: RESPIRATORY TRACT INFECTION
     Route: 048
     Dates: start: 201605, end: 20160529

REACTIONS (1)
  - Upper gastrointestinal haemorrhage [Recovered/Resolved]

NARRATIVE: CASE EVENT DATE: 20160601
